FAERS Safety Report 20481767 (Version 4)
Quarter: 2022Q1

REPORT INFORMATION
  Report Type: Report from Study
  Country: CA (occurrence: CA)
  Receive Date: 20220216
  Receipt Date: 20220317
  Transmission Date: 20220423
  Serious: Yes (Hospitalization)
  Sender: FDA-Public Use
  Company Number: CA-ALNYLAM PHARMACEUTICALS, INC.-ALN-2022-000594

PATIENT

DRUGS (12)
  1. ONPATTRO [Suspect]
     Active Substance: PATISIRAN SODIUM
     Indication: Amyloidosis senile
     Dosage: 21.5 MILLIGRAM
     Route: 042
     Dates: start: 20220310
  2. ONPATTRO [Suspect]
     Active Substance: PATISIRAN SODIUM
     Indication: Polyneuropathy
     Dosage: 0.3 MILLIGRAM/KILOGRAM, Q3W
     Route: 042
     Dates: start: 20220121
  3. ONPATTRO [Suspect]
     Active Substance: PATISIRAN SODIUM
     Dosage: 0.3 MILLIGRAM/KILOGRAM, Q3W
     Route: 042
     Dates: start: 20190920
  4. FAMOTIDINE [Concomitant]
     Active Substance: FAMOTIDINE
     Indication: Prophylaxis
     Dosage: 20 MILLIGRAM
     Route: 048
  5. ACETAMINOPHEN [Concomitant]
     Active Substance: ACETAMINOPHEN
     Indication: Prophylaxis
     Dosage: 500 MILLIGRAM
     Route: 048
  6. DIPHENHYDRAMINE [Concomitant]
     Active Substance: DIPHENHYDRAMINE
     Indication: Prophylaxis
     Dosage: 50 MILLIGRAM
     Route: 048
  7. DEXAMETHASONE [Concomitant]
     Active Substance: DEXAMETHASONE
     Indication: Prophylaxis
     Dosage: 10 MILLIGRAM
     Route: 042
  8. VITAMIN A [Concomitant]
     Active Substance: VITAMIN A
     Indication: Prophylaxis
     Dosage: 3000 INTERNATIONAL UNIT
     Route: 048
     Dates: start: 20190918
  9. LASIX [Concomitant]
     Active Substance: FUROSEMIDE
     Indication: Cardiac failure
     Dosage: 120 MILLIGRAM, QD (SEPARATE DOSES 80 MG AND 40 MG)
     Route: 048
     Dates: start: 201505
  10. RABEPRAZOLE [Concomitant]
     Active Substance: RABEPRAZOLE
     Indication: Gastrooesophageal reflux disease
     Dosage: 20 MILLIGRAM, QD
     Route: 065
     Dates: start: 2017
  11. WARFARIN [Concomitant]
     Active Substance: WARFARIN
     Indication: Product used for unknown indication
     Dosage: 3-4 MILLIGRAM, QD
     Route: 048
     Dates: start: 201904
  12. FLUOXETINE [Concomitant]
     Active Substance: FLUOXETINE HYDROCHLORIDE
     Indication: Product used for unknown indication
     Dosage: 20 MILLIGRAM, QD
     Route: 048
     Dates: start: 201902

REACTIONS (6)
  - Pneumothorax [Unknown]
  - Pleural effusion [Recovered/Resolved]
  - Weight fluctuation [Unknown]
  - Blood pressure decreased [Unknown]
  - Product dose omission issue [Unknown]
  - Product dose omission issue [Unknown]

NARRATIVE: CASE EVENT DATE: 20220211
